FAERS Safety Report 6303750-5 (Version None)
Quarter: 2009Q3

REPORT INFORMATION
  Report Type: 
  Country: None (occurrence: None)
  Receive Date: 20090805
  Receipt Date: 20090730
  Transmission Date: 20100115
  Serious: Yes (Life-Threatening, Hospitalization)
  Sender: FDA-Public Use
  Company Number: 20097068

PATIENT
  Age: 10 Year
  Sex: Male

DRUGS (2)
  1. LIORESAL [Suspect]
     Indication: MUSCLE SPASTICITY
     Dosage: 300 MCG, DAILY, INTRATHECAL
     Route: 037
  2. TRILEPTAL [Concomitant]

REACTIONS (12)
  - ASTHENIA [None]
  - COMA [None]
  - HYPOTONIA [None]
  - INAPPROPRIATE AFFECT [None]
  - MENTAL STATUS CHANGES [None]
  - MOUNTAIN SICKNESS ACUTE [None]
  - OVERDOSE [None]
  - RETCHING [None]
  - SOMNOLENCE [None]
  - SPEECH DISORDER [None]
  - UNRESPONSIVE TO STIMULI [None]
  - VOMITING [None]
